FAERS Safety Report 12847992 (Version 1)
Quarter: 2016Q4

REPORT INFORMATION
  Report Type: Spontaneous
  Country: US (occurrence: US)
  Receive Date: 20161014
  Receipt Date: 20161014
  Transmission Date: 20170207
  Serious: No
  Sender: FDA-Public Use
  Company Number: US-JNJFOC-20160923003

PATIENT
  Age: 55 Year
  Sex: Female
  Weight: 68.95 kg

DRUGS (3)
  1. TYLENOL REGULAR STRENGTH [Suspect]
     Active Substance: ACETAMINOPHEN
     Indication: PROCEDURAL PAIN
     Dosage: 10 DOSES (UNIT UNSPECIFIED)
     Route: 048
     Dates: start: 20160920
  2. HYDROCODONE [Concomitant]
     Active Substance: HYDROCODONE
     Indication: PROCEDURAL PAIN
     Dosage: 3 TO 4 DOSES (UNIT UNSPECIFIED)
     Route: 065
     Dates: start: 20160920
  3. TYLENOL EXTRA STRENGTH [Suspect]
     Active Substance: ACETAMINOPHEN
     Indication: PROCEDURAL PAIN
     Dosage: 24 DOSES (UNIT UNSPECIFIED)
     Route: 048
     Dates: start: 20160920

REACTIONS (3)
  - Overdose [Unknown]
  - Product use issue [Unknown]
  - Drug administration error [Unknown]

NARRATIVE: CASE EVENT DATE: 20160920
